FAERS Safety Report 16840664 (Version 2)
Quarter: 2020Q1

REPORT INFORMATION
  Report Type: Spontaneous
  Country: FR (occurrence: FR)
  Receive Date: 20190923
  Receipt Date: 20200211
  Transmission Date: 20200409
  Serious: Yes (Other)
  Sender: FDA-Public Use
  Company Number: FR-MYLANLABS-2019M1088591

PATIENT
  Age: 52 Year
  Sex: Male
  Weight: 93 kg

DRUGS (6)
  1. SERESTA [Interacting]
     Active Substance: OXAZEPAM
     Indication: ANXIETY
     Dosage: 100 MG, QD
     Route: 048
     Dates: start: 20190904
  2. SERESTA [Interacting]
     Active Substance: OXAZEPAM
     Dosage: UNK
     Route: 048
     Dates: start: 201909
  3. LEPONEX [Interacting]
     Active Substance: CLOZAPINE
     Dosage: UNK
     Route: 048
     Dates: start: 201909
  4. THERALENE [Interacting]
     Active Substance: TRIMEPRAZINE
     Indication: INSOMNIA
     Dosage: 40 GTT, QD(1/12 MILLILITRE)
     Route: 048
     Dates: start: 20190904
  5. LOXAPAC                            /00401802/ [Interacting]
     Active Substance: LOXAPINE SUCCINATE
     Indication: PSYCHOTIC DISORDER
     Dosage: UNK
     Route: 048
     Dates: start: 20190904
  6. LEPONEX [Suspect]
     Active Substance: CLOZAPINE
     Indication: SCHIZOPHRENIA
     Dosage: 700 MILLIGRAM, QD
     Route: 048
     Dates: start: 20190904

REACTIONS (3)
  - Drug interaction [Unknown]
  - Somnolence [Recovered/Resolved]
  - Antipsychotic drug level increased [Recovering/Resolving]

NARRATIVE: CASE EVENT DATE: 201909
